FAERS Safety Report 5762257-4 (Version None)
Quarter: 2008Q2

REPORT INFORMATION
  Report Type: 
  Country: None (occurrence: None)
  Receive Date: 20080609
  Receipt Date: 20080603
  Transmission Date: 20081010
  Serious: Yes (Hospitalization)
  Sender: FDA-Public Use
  Company Number: US-ELI_LILLY_AND_COMPANY-US200602004265

PATIENT
  Age: 96 Year
  Sex: Female

DRUGS (3)
  1. OLANZAPINE [Suspect]
     Dosage: 5 MG, DAILY (1/D)
     Route: 048
     Dates: start: 20030101, end: 20050101
  2. OLANZAPINE [Suspect]
     Dosage: 2.5 MG, DAILY (1/D)
     Route: 048
     Dates: start: 20050101, end: 20060213
  3. ARICEPT                                 /JPN/ [Concomitant]
     Dosage: UNK, UNKNOWN

REACTIONS (7)
  - CARDIAC FAILURE [None]
  - DEHYDRATION [None]
  - HYPERTENSION [None]
  - MOANING [None]
  - RESPIRATORY DISORDER [None]
  - SOMNOLENCE [None]
  - URINARY TRACT INFECTION [None]
